FAERS Safety Report 18944828 (Version 1)
Quarter: 2021Q1

REPORT INFORMATION
  Report Type: Spontaneous
  Country: US (occurrence: US)
  Receive Date: 20210226
  Receipt Date: 20210226
  Transmission Date: 20210420
  Serious: Yes (Other)
  Sender: FDA-Public Use
  Company Number: US-PBT-000556

PATIENT
  Age: 40 Year

DRUGS (1)
  1. TACROLIMUS. [Suspect]
     Active Substance: TACROLIMUS
     Indication: PROPHYLAXIS AGAINST GRAFT VERSUS HOST DISEASE
     Route: 065

REACTIONS (6)
  - Toxicity to various agents [Recovered/Resolved]
  - Hypertension [Recovered/Resolved]
  - Sepsis [Recovered/Resolved]
  - Acute kidney injury [Recovered/Resolved]
  - Hyperglycaemia [Recovered/Resolved]
  - Product use in unapproved indication [Unknown]
